FAERS Safety Report 11794507 (Version 1)
Quarter: 2015Q4

REPORT INFORMATION
  Report Type: Spontaneous
  Country: US (occurrence: US)
  Receive Date: 20151202
  Receipt Date: 20151202
  Transmission Date: 20160305
  Serious: No
  Sender: FDA-Public Use
  Company Number: US-PFIZER INC-2015406993

PATIENT
  Age: 47 Year
  Sex: Male
  Weight: 104.3 kg

DRUGS (1)
  1. VIAGRA [Suspect]
     Active Substance: SILDENAFIL CITRATE
     Indication: SEXUALLY ACTIVE
     Dosage: 2 DF, UNK(2 PILLS PER DAY)
     Route: 048
     Dates: start: 20151113

REACTIONS (1)
  - Semen volume increased [Not Recovered/Not Resolved]

NARRATIVE: CASE EVENT DATE: 20151117
